FAERS Safety Report 23689782 (Version 1)
Quarter: 2024Q1

REPORT INFORMATION
  Report Type: Spontaneous
  Country: JP (occurrence: JP)
  Receive Date: 20240331
  Receipt Date: 20240331
  Transmission Date: 20240410
  Serious: Yes (Death)
  Sender: FDA-Public Use
  Company Number: JP-002147023-NVSJ2024JP003327

PATIENT
  Age: 93 Year
  Sex: Female

DRUGS (1)
  1. ENTRESTO [Suspect]
     Active Substance: SACUBITRIL\VALSARTAN
     Indication: Cardiac failure chronic
     Dosage: 200 MG
     Route: 048

REACTIONS (4)
  - Pneumonia aspiration [Fatal]
  - Concomitant disease aggravated [Fatal]
  - Dysphagia [Unknown]
  - Marasmus [Unknown]

NARRATIVE: CASE EVENT DATE: 20240221
